FAERS Safety Report 5226979-6 (Version None)
Quarter: 2007Q1

REPORT INFORMATION
  Report Type: 
  Country: None (occurrence: None)
  Receive Date: 20070201
  Receipt Date: 20070201
  Transmission Date: 20070707
  Serious: Yes (Hospitalization, Other)
  Sender: FDA-Public Use
  Company Number: None

PATIENT
  Age: 77 Year
  Sex: Male
  Weight: 65.7716 kg

DRUGS (1)
  1. RYTHMOL [Suspect]
     Indication: HEART RATE IRREGULAR
     Dates: start: 20060411, end: 20060424

REACTIONS (7)
  - ARTHRALGIA [None]
  - ASTHENIA [None]
  - COUGH [None]
  - DRY MOUTH [None]
  - DYSPHONIA [None]
  - FATIGUE [None]
  - NECK PAIN [None]
